FAERS Safety Report 6566352-1 (Version None)
Quarter: 2010Q1

REPORT INFORMATION
  Report Type: 
  Country: None (occurrence: None)
  Receive Date: 20100202
  Receipt Date: 20100125
  Transmission Date: 20100710
  Serious: Yes (Death)
  Sender: FDA-Public Use
  Company Number: GB-MPIJNJ-2010-00968

PATIENT

DRUGS (1)
  1. VELCADE [Suspect]
     Indication: MULTIPLE MYELOMA
     Dosage: UNK
     Dates: start: 20090813, end: 20091005

REACTIONS (4)
  - DRUG INEFFECTIVE [None]
  - HYPERCALCAEMIA [None]
  - MULTIPLE MYELOMA [None]
  - SEPSIS [None]
